FAERS Safety Report 16827637 (Version 1)
Quarter: 2019Q4

REPORT INFORMATION
  Report Type: Spontaneous
  Country: US (occurrence: US)
  Receive Date: 20190919
  Receipt Date: 20190919
  Transmission Date: 20200122
  Serious: Yes (Hospitalization)
  Sender: FDA-Public Use
  Company Number: None

PATIENT
  Age: 70 Year
  Sex: Male

DRUGS (15)
  1. ASPIRIN LOW DOSE [Concomitant]
     Active Substance: ASPIRIN
  2. ROPINIROLE. [Concomitant]
     Active Substance: ROPINIROLE
  3. FINASTERIDE. [Concomitant]
     Active Substance: FINASTERIDE
  4. AZO [Concomitant]
     Active Substance: PHENAZOPYRIDINE HYDROCHLORIDE
  5. COLACE [Concomitant]
     Active Substance: DOCUSATE SODIUM
  6. SENNA [Concomitant]
     Active Substance: SENNA LEAF\SENNOSIDES\SENNOSIDES A AND B
  7. TAMSULOSIN [Concomitant]
     Active Substance: TAMSULOSIN
  8. TOVIAZ [Concomitant]
     Active Substance: FESOTERODINE FUMARATE
  9. LISINOPRIL. [Concomitant]
     Active Substance: LISINOPRIL
  10. NITROFURANTIN [Concomitant]
     Active Substance: NITROFURANTOIN
  11. CLARITIN [Concomitant]
     Active Substance: LORATADINE
  12. HUMIRA [Suspect]
     Active Substance: ADALIMUMAB
     Indication: PSORIASIS
     Dosage: ?          OTHER FREQUENCY:EVERY 14 DAYS;?
     Route: 058
     Dates: start: 20171012
  13. VITAMIN C [Concomitant]
     Active Substance: ASCORBIC ACID
  14. FOLIC ACID. [Concomitant]
     Active Substance: FOLIC ACID
  15. NORVASC [Concomitant]
     Active Substance: AMLODIPINE BESYLATE

REACTIONS (1)
  - Urinary tract infection [None]

NARRATIVE: CASE EVENT DATE: 20190818
